FAERS Safety Report 18313129 (Version 1)
Quarter: 2020Q3

REPORT INFORMATION
  Report Type: Spontaneous
  Country: US (occurrence: US)
  Receive Date: 20200925
  Receipt Date: 20200925
  Transmission Date: 20201103
  Serious: No
  Sender: FDA-Public Use
  Company Number: US-GRANULES INDIA LIMITED-2091162

PATIENT

DRUGS (1)
  1. METFORMIN HYDROCHLORIDE. [Suspect]
     Active Substance: METFORMIN HYDROCHLORIDE
     Indication: PRODUCT USED FOR UNKNOWN INDICATION
     Route: 065

REACTIONS (6)
  - Weight decreased [Unknown]
  - Product measured potency issue [Unknown]
  - Illness [Unknown]
  - Adverse event [Unknown]
  - Urticaria [Unknown]
  - Food allergy [Unknown]

NARRATIVE: CASE EVENT DATE: 20200704
